FAERS Safety Report 11906327 (Version 1)
Quarter: 2016Q1

REPORT INFORMATION
  Report Type: Spontaneous
  Country: US (occurrence: None)
  Receive Date: 20160108
  Receipt Date: 20160108
  Transmission Date: 20160526
  Serious: No
  Sender: FDA-Public Use
  Company Number: None

PATIENT
  Age: 57 Year
  Sex: Male

DRUGS (20)
  1. ENBREL [Suspect]
     Active Substance: ETANERCEPT
     Indication: PSORIASIS
     Route: 058
     Dates: start: 20090616
  2. VALTREX [Concomitant]
     Active Substance: VALACYCLOVIR HYDROCHLORIDE
  3. HYDROCODONE BITARTRATE AND ACETAMINOPHEN [Concomitant]
     Active Substance: ACETAMINOPHEN\HYDROCODONE BITARTRATE
  4. ATACAND [Concomitant]
     Active Substance: CANDESARTAN CILEXETIL
  5. AMOXICILLIN. [Concomitant]
     Active Substance: AMOXICILLIN
  6. CANDESARTAN [Concomitant]
     Active Substance: CANDESARTAN
  7. XANAX [Concomitant]
     Active Substance: ALPRAZOLAM
  8. ASPIRIN. [Concomitant]
     Active Substance: ASPIRIN
  9. RAPTIVA [Concomitant]
     Active Substance: EFALIZUMAB
  10. TRAMADOL. [Concomitant]
     Active Substance: TRAMADOL
  11. NEXIUM [Concomitant]
     Active Substance: ESOMEPRAZOLE MAGNESIUM
  12. ZETIA [Concomitant]
     Active Substance: EZETIMIBE
  13. LOPRESSOR [Concomitant]
     Active Substance: METOPROLOL TARTRATE
  14. ZANTAC [Concomitant]
     Active Substance: RANITIDINE HYDROCHLORIDE
  15. LIPITOR [Concomitant]
     Active Substance: ATORVASTATIN CALCIUM
  16. PREDNISONE. [Concomitant]
     Active Substance: PREDNISONE
  17. PENICILLIN [Concomitant]
     Active Substance: PENICILLIN
  18. METOPROLOL. [Concomitant]
     Active Substance: METOPROLOL
  19. PLAVIX [Concomitant]
     Active Substance: CLOPIDOGREL BISULFATE
  20. ATORVASTATIN [Concomitant]
     Active Substance: ATORVASTATIN

REACTIONS (1)
  - Rash [None]

NARRATIVE: CASE EVENT DATE: 201601
